FAERS Safety Report 10627277 (Version 1)
Quarter: 2014Q4

REPORT INFORMATION
  Report Type: Spontaneous
  Country: US (occurrence: US)
  Receive Date: 20141204
  Receipt Date: 20141204
  Transmission Date: 20150529
  Serious: No
  Sender: FDA-Public Use
  Company Number: US-GLAXOSMITHKLINE-A1085511A

PATIENT

DRUGS (4)
  1. FABIOR [Suspect]
     Active Substance: TAZAROTENE
     Indication: ACNE
     Route: 061
     Dates: start: 20140811, end: 20140813
  2. FABIOR [Suspect]
     Active Substance: TAZAROTENE
     Indication: ACNE
  3. DOXYCYCLINE. [Concomitant]
     Active Substance: DOXYCYCLINE
     Indication: PRODUCT USED FOR UNKNOWN INDICATION
  4. FABIOR [Suspect]
     Active Substance: TAZAROTENE
     Indication: ACNE

REACTIONS (1)
  - Application site exfoliation [Not Recovered/Not Resolved]

NARRATIVE: CASE EVENT DATE: 20140811
